FAERS Safety Report 7091761-4 (Version None)
Quarter: 2010Q4

REPORT INFORMATION
  Report Type: 
  Country: None (occurrence: None)
  Receive Date: 20101109
  Receipt Date: 20101104
  Transmission Date: 20110411
  Serious: Yes (Hospitalization, Disabling, Other)
  Sender: FDA-Public Use
  Company Number: US-MERCK-1009USA00853

PATIENT
  Age: 85 Year
  Sex: Female

DRUGS (2)
  1. FOSAMAX [Suspect]
     Indication: OSTEOPOROSIS
     Route: 048
     Dates: end: 20070101
  2. LIPITOR [Concomitant]
     Indication: BLOOD CHOLESTEROL
     Route: 048
     Dates: start: 19930101

REACTIONS (16)
  - ADVERSE DRUG REACTION [None]
  - BLOOD CREATININE INCREASED [None]
  - BONE DENSITY DECREASED [None]
  - CARDIAC DISORDER [None]
  - COUGH [None]
  - DENTAL PLAQUE [None]
  - GINGIVAL BLEEDING [None]
  - GINGIVAL HYPERTROPHY [None]
  - GINGIVITIS [None]
  - HAEMORRHAGE [None]
  - HOSPITALISATION [None]
  - OSTEONECROSIS OF JAW [None]
  - PERIODONTAL DISEASE [None]
  - RENAL TRANSPLANT [None]
  - RHEUMATOID ARTHRITIS [None]
  - TONGUE ULCERATION [None]
